FAERS Safety Report 6103976-X (Version None)
Quarter: 2009Q1

REPORT INFORMATION
  Report Type: 
  Country: None (occurrence: None)
  Receive Date: 20090305
  Receipt Date: 20090226
  Transmission Date: 20090719
  Serious: Yes (Life-Threatening, Hospitalization)
  Sender: FDA-Public Use
  Company Number: B0563170A

PATIENT
  Age: 61 Year
  Sex: Female

DRUGS (9)
  1. CEFUROXIME AXETIL [Suspect]
     Route: 048
     Dates: start: 20081205, end: 20081209
  2. METFORMIN [Suspect]
     Dosage: 1000MG TWICE PER DAY
     Route: 048
     Dates: start: 20010101, end: 20081210
  3. HYDROXYUREA [Suspect]
     Indication: DRUG USE FOR UNKNOWN INDICATION
     Dosage: 500MG TWICE PER DAY
     Route: 048
     Dates: start: 20070101, end: 20081210
  4. AMARYL [Concomitant]
     Dosage: 4MG PER DAY
     Route: 048
     Dates: start: 20010101, end: 20081210
  5. ACETYLSALICYLIC ACID [Concomitant]
     Dosage: 100MG PER DAY
     Route: 048
     Dates: start: 20060101
  6. ATENOLOL [Concomitant]
     Dosage: 25MG PER DAY
     Route: 048
  7. COZAAR [Concomitant]
     Route: 048
  8. PANTOZOL [Concomitant]
     Dosage: 20MG PER DAY
     Route: 048
  9. SORTIS [Concomitant]
     Dosage: 10MG PER DAY
     Route: 048

REACTIONS (17)
  - ABDOMINAL PAIN [None]
  - ALANINE AMINOTRANSFERASE INCREASED [None]
  - ANURIA [None]
  - ASCITES [None]
  - BLINDNESS [None]
  - BLOOD ALKALINE PHOSPHATASE INCREASED [None]
  - BLOOD BICARBONATE DECREASED [None]
  - BLOOD CREATININE INCREASED [None]
  - BLOOD UREA INCREASED [None]
  - CHOLESTATIC LIVER INJURY [None]
  - DRUG INTERACTION [None]
  - HYPERAMMONAEMIA [None]
  - LACTIC ACIDOSIS [None]
  - NAUSEA [None]
  - RENAL FAILURE [None]
  - TACHYPNOEA [None]
  - VOMITING [None]
